FAERS Safety Report 9238008 (Version 1)
Quarter: 2013Q2

REPORT INFORMATION
  Report Type: Spontaneous
  Country: US (occurrence: US)
  Receive Date: 20130418
  Receipt Date: 20130418
  Transmission Date: 20140414
  Serious: Yes (Other)
  Sender: FDA-Public Use
  Company Number: US-TEVA-398333USA

PATIENT
  Sex: Female

DRUGS (1)
  1. COPAXONE [Suspect]
     Indication: MULTIPLE SCLEROSIS

REACTIONS (5)
  - Wound infection [Recovering/Resolving]
  - Injection site necrosis [Recovering/Resolving]
  - Pain [Recovering/Resolving]
  - Injection site bruising [Recovering/Resolving]
  - Vessel perforation [Recovering/Resolving]
